FAERS Safety Report 6665612-3 (Version None)
Quarter: 2010Q1

REPORT INFORMATION
  Report Type: 
  Country: None (occurrence: None)
  Receive Date: 20100330
  Receipt Date: 20100315
  Transmission Date: 20100710
  Serious: Yes (Other)
  Sender: FDA-Public Use
  Company Number: 008823

PATIENT

DRUGS (1)
  1. LACOSAMIDE [Suspect]
     Indication: CONVULSION
     Dosage: 200 MG BID ORAL
     Route: 048

REACTIONS (1)
  - BRADYCARDIA [None]
